FAERS Safety Report 6909385-5 (Version None)
Quarter: 2010Q3

REPORT INFORMATION
  Report Type: 
  Country: None (occurrence: None)
  Receive Date: 20100805
  Receipt Date: 20100727
  Transmission Date: 20110219
  Serious: Yes (Hospitalization)
  Sender: FDA-Public Use
  Company Number: DE-ABBOTT-10P-062-0660524-00

PATIENT
  Age: 65 Year
  Sex: Female

DRUGS (6)
  1. HUMIRA [Suspect]
     Indication: RHEUMATOID ARTHRITIS
     Route: 058
     Dates: start: 20040101
  2. METHOTREXATE [Concomitant]
     Indication: RHEUMATOID ARTHRITIS
     Dates: end: 20040101
  3. METHOTREXATE [Concomitant]
     Dates: end: 20050101
  4. METHOTREXATE [Concomitant]
     Dates: start: 20050101
  5. METHOTREXATE [Concomitant]
     Dates: end: 20060101
  6. METHOTREXATE [Concomitant]
     Dates: start: 20070101

REACTIONS (1)
  - SPINAL COLUMN STENOSIS [None]
